FAERS Safety Report 10434346 (Version 1)
Quarter: 2014Q3

REPORT INFORMATION
  Report Type: Spontaneous
  Country: AU (occurrence: AU)
  Receive Date: 20140905
  Receipt Date: 20140905
  Transmission Date: 20150326
  Serious: Yes (Other)
  Sender: FDA-Public Use
  Company Number: PHHY2014AU112585

PATIENT
  Sex: Male

DRUGS (2)
  1. TEGRETOL [Suspect]
     Active Substance: CARBAMAZEPINE
     Dosage: UNK UKN, UNK
  2. CORTICOSTEROID DERIVATIVES [Suspect]
     Active Substance: CORTICOSTEROID NOS
     Dosage: UNK UKN, UNK

REACTIONS (3)
  - Diabetes mellitus inadequate control [Unknown]
  - Confusional state [Unknown]
  - Blood glucose increased [Unknown]
